FAERS Safety Report 8397090-0 (Version None)
Quarter: 2012Q2

REPORT INFORMATION
  Report Type: 
  Country: None (occurrence: None)
  Receive Date: 20120530
  Receipt Date: 20120515
  Transmission Date: 20120825
  Serious: Yes (Other)
  Sender: FDA-Public Use
  Company Number: CHPA2012US011043

PATIENT
  Age: 71 Year
  Sex: Female

DRUGS (2)
  1. EXCEDRIN EXTRA STRENGTH TABLETS [Suspect]
     Indication: HEADACHE
     Dosage: 1 DF, QD
     Route: 048
     Dates: start: 19860101
  2. EXCEDRIN EXTRA STRENGTH TABLETS [Suspect]
     Dosage: 2 DF, PRN
     Route: 048
     Dates: start: 19620101, end: 19860101

REACTIONS (3)
  - UNDERDOSE [None]
  - RHEUMATOID ARTHRITIS [None]
  - INCORRECT DRUG ADMINISTRATION DURATION [None]
